FAERS Safety Report 6809716-0 (Version None)
Quarter: 2010Q2

REPORT INFORMATION
  Report Type: 
  Country: None (occurrence: None)
  Receive Date: 20100630
  Receipt Date: 20100624
  Transmission Date: 20101027
  Serious: Yes (Other)
  Sender: FDA-Public Use
  Company Number: JP-PFIZER INC-2010078648

PATIENT

DRUGS (1)
  1. AROMASIN [Suspect]
     Route: 048

REACTIONS (1)
  - DERMATOMYOSITIS [None]
